FAERS Safety Report 8276914-1 (Version None)
Quarter: 2012Q2

REPORT INFORMATION
  Report Type: 
  Country: None (occurrence: None)
  Receive Date: 20120412
  Receipt Date: 20120409
  Transmission Date: 20120825
  Serious: Yes (Other)
  Sender: FDA-Public Use
  Company Number: US-PFIZER INC-2012088176

PATIENT
  Sex: Male

DRUGS (4)
  1. EFFEXOR [Suspect]
     Dosage: TWO TABLETS THE SECOND WEEK
  2. EFFEXOR [Suspect]
     Indication: ANXIETY
     Dosage: UNKNOWN DOSE AT THE FREQUENCY ONE TABLET THE FIRST WEEK
     Route: 048
     Dates: start: 20120206
  3. EFFEXOR [Suspect]
     Dosage: THREE TABLETS THE THIRD WEEK
  4. EFFEXOR [Suspect]
     Dosage: FOUR TABLETS THE FOURTH WEEK
     Dates: end: 20120306

REACTIONS (3)
  - MANIA [None]
  - BIPOLAR DISORDER [None]
  - IRRITABILITY [None]
